FAERS Safety Report 22629661 (Version 1)
Quarter: 2023Q2

REPORT INFORMATION
  Report Type: Spontaneous
  Country: GB (occurrence: GB)
  Receive Date: 20230622
  Receipt Date: 20230622
  Transmission Date: 20230722
  Serious: Yes (Life-Threatening, Congenital Anomaly, Other)
  Sender: FDA-Public Use
  Company Number: GB-FERRING-2023FE02908

PATIENT
  Sex: Female

DRUGS (3)
  1. PROSTIN E2 [Suspect]
     Active Substance: DINOPROSTONE
     Indication: Labour induction
     Dosage: 1 X 3 MG ON A 5 DAY PERIOD
     Route: 064
  2. DINOPROSTONE [Suspect]
     Active Substance: DINOPROSTONE
     Indication: Labour induction
     Dosage: 3 X ON A 5 DAY PERIOD
     Route: 064
     Dates: start: 20220524, end: 20220528
  3. FOLIC ACID [Concomitant]
     Active Substance: FOLIC ACID
     Indication: Vitamin supplementation
     Dosage: 400 UG

REACTIONS (3)
  - Maternal exposure during pregnancy [Unknown]
  - Perinatal brain damage [Unknown]
  - Bradycardia foetal [Unknown]
